FAERS Safety Report 21510923 (Version 1)
Quarter: 2022Q4

REPORT INFORMATION
  Report Type: Spontaneous
  Country: US (occurrence: None)
  Receive Date: 20221026
  Receipt Date: 20221026
  Transmission Date: 20230112
  Serious: No
  Sender: FDA-Public Use
  Company Number: None

PATIENT
  Sex: Male

DRUGS (1)
  1. DUPIXENT [Suspect]
     Active Substance: DUPILUMAB
     Indication: Asthma
     Dosage: FREQUENCY : WEEKLY;?
     Route: 058
     Dates: start: 202210

REACTIONS (6)
  - Mental disorder [None]
  - General physical condition abnormal [None]
  - Device leakage [None]
  - Device malfunction [None]
  - Device defective [None]
  - Incorrect dose administered [None]
